FAERS Safety Report 13968393 (Version 2)
Quarter: 2017Q4

REPORT INFORMATION
  Report Type: Spontaneous
  Country: HU (occurrence: HU)
  Receive Date: 20170914
  Receipt Date: 20171018
  Transmission Date: 20180320
  Serious: Yes (Death, Hospitalization, Other)
  Sender: FDA-Public Use
  Company Number: HU-JNJFOC-20170911346

PATIENT
  Age: 68 Year
  Sex: Male

DRUGS (2)
  1. XARELTO [Suspect]
     Active Substance: RIVAROXABAN
     Indication: ATRIAL FIBRILLATION
     Route: 048
     Dates: start: 20161018, end: 201703
  2. CLEXANE [Concomitant]
     Active Substance: ENOXAPARIN SODIUM
     Route: 065

REACTIONS (6)
  - Lung neoplasm [Fatal]
  - Blood urine present [Recovered/Resolved]
  - Metastases to bone [Fatal]
  - Diverticulum intestinal haemorrhagic [Unknown]
  - Haemorrhage [Recovered/Resolved]
  - Bladder neoplasm [Unknown]

NARRATIVE: CASE EVENT DATE: 201703
